FAERS Safety Report 4357574-9 (Version None)
Quarter: 2004Q2

REPORT INFORMATION
  Report Type: 
  Country: None (occurrence: None)
  Receive Date: 20040510
  Receipt Date: 20040427
  Transmission Date: 20050107
  Serious: Yes (Life-Threatening, Hospitalization, Other)
  Sender: FDA-Public Use
  Company Number: FR-JNJFOC-20040304167

PATIENT
  Age: 38 Year
  Sex: Male
  Weight: 72 kg

DRUGS (3)
  1. REMICADE [Suspect]
     Indication: CROHN'S DISEASE
     Dosage: 2 DOSES
     Dates: start: 20040301, end: 20040305
  2. FIVASA (ALL OTHER THERAPEUTIC PRODUCTS) [Concomitant]
  3. PENTASA [Concomitant]

REACTIONS (2)
  - ANGIONEUROTIC OEDEMA [None]
  - INFUSION RELATED REACTION [None]
